FAERS Safety Report 7284279-7 (Version None)
Quarter: 2011Q1

REPORT INFORMATION
  Report Type: 
  Country: None (occurrence: None)
  Receive Date: 20110131
  Receipt Date: 20110113
  Transmission Date: 20110831
  Serious: Yes (Other)
  Sender: FDA-Public Use
  Company Number: 2011P1003806

PATIENT
  Age: 66 Year
  Sex: Male
  Weight: 68.0396 kg

DRUGS (10)
  1. HYDROCORTISONE 1%-P CREAM [Suspect]
     Indication: DRY SKIN
     Dosage: QID; TOP
     Route: 061
     Dates: start: 20101201, end: 20110106
  2. HYDROCORTISONE 1%-P CREAM [Suspect]
     Indication: PRURITUS
     Dosage: QID; TOP
     Route: 061
     Dates: start: 20101201, end: 20110106
  3. VITAMIN D [Concomitant]
  4. PRED FORTE OCULAR [Concomitant]
  5. MULTI-VITAMIN [Concomitant]
  6. CALCIUM [Concomitant]
  7. GABAPENTIN [Concomitant]
  8. ZOLOFT [Concomitant]
  9. CAYENNE [Concomitant]
  10. FISH OIL [Concomitant]

REACTIONS (3)
  - JOINT SWELLING [None]
  - OEDEMA PERIPHERAL [None]
  - VEIN DISORDER [None]
